FAERS Safety Report 9553682 (Version 1)
Quarter: 2013Q3

REPORT INFORMATION
  Report Type: Spontaneous
  Country: AU (occurrence: None)
  Receive Date: 20130923
  Receipt Date: 20130923
  Transmission Date: 20140515
  Serious: No
  Sender: FDA-Public Use
  Company Number: 2013257567

PATIENT
  Age: 80 Year
  Sex: Female

DRUGS (10)
  1. CIPROFLOXACIN HCL [Suspect]
     Indication: PRODUCT USED FOR UNKNOWN INDICATION
     Route: 048
  2. OXYCONTIN (OXYCODONE HYDROCHLORIDE) [Suspect]
     Indication: PAIN
  3. PARACETAMOL (PARACETAMOL) [Concomitant]
  4. SOLIFENACIN [Concomitant]
  5. ASPIRIN (ACETYLSALICYLIC ACID) [Concomitant]
  6. THIAMINE (THIAMINE) [Concomitant]
  7. CALCIUM (CALCIUM) [Concomitant]
  8. CHOLECALCIFEROL (COLECALCIFEROL, GENISTEIN, ZINC) [Concomitant]
  9. METOPROLOL (METOPROLOL) [Concomitant]
  10. FENTANYL (FENTANYL) [Concomitant]

REACTIONS (1)
  - Myoclonus [None]
